FAERS Safety Report 6089887-7 (Version None)
Quarter: 2009Q1

REPORT INFORMATION
  Report Type: 
  Country: None (occurrence: None)
  Receive Date: 20090224
  Receipt Date: 20081121
  Transmission Date: 20090719
  Serious: No
  Sender: FDA-Public Use
  Company Number: US-ABBOTT-08P-163-0489082-00

PATIENT
  Sex: Male

DRUGS (12)
  1. SIMCOR [Suspect]
     Indication: BLOOD CHOLESTEROL INCREASED
     Dosage: 500/20MG
     Dates: start: 20081101, end: 20081125
  2. PRINZIDE [Concomitant]
     Indication: DRUG USE FOR UNKNOWN INDICATION
     Dosage: 10/12.5MG
  3. PIOGLITAZONE [Concomitant]
     Indication: DRUG USE FOR UNKNOWN INDICATION
  4. RISPERIDONE [Concomitant]
     Indication: DRUG USE FOR UNKNOWN INDICATION
  5. ESOMEPRAZOLE MAGNESIUM [Concomitant]
     Indication: DRUG USE FOR UNKNOWN INDICATION
  6. METFORMIN [Concomitant]
     Indication: DRUG USE FOR UNKNOWN INDICATION
  7. ESCITALOPRAM OXALATE [Concomitant]
     Indication: DRUG USE FOR UNKNOWN INDICATION
  8. BUDESONIDE [Concomitant]
     Indication: DRUG USE FOR UNKNOWN INDICATION
  9. BRINZOLAMIDE [Concomitant]
     Indication: DRUG USE FOR UNKNOWN INDICATION
     Dosage: 1% - 1 DROP IN BOTH EYES
  10. FORMOTEROL FUMARATE [Concomitant]
     Indication: DRUG USE FOR UNKNOWN INDICATION
     Route: 055
  11. FENOFIBRATE [Concomitant]
     Indication: DRUG USE FOR UNKNOWN INDICATION
  12. ALERAZOLAM [Concomitant]
     Indication: DRUG USE FOR UNKNOWN INDICATION

REACTIONS (3)
  - FLUSHING [None]
  - LOSS OF CONSCIOUSNESS [None]
  - MYALGIA [None]
